FAERS Safety Report 6435903-X (Version None)
Quarter: 2009Q4

REPORT INFORMATION
  Report Type: 
  Country: None (occurrence: None)
  Receive Date: 20091111
  Receipt Date: 20091029
  Transmission Date: 20100525
  Serious: Yes (Hospitalization)
  Sender: FDA-Public Use
  Company Number: US-ELI_LILLY_AND_COMPANY-US200910008010

PATIENT
  Age: 68 Year
  Sex: Female

DRUGS (5)
  1. CYMBALTA [Suspect]
     Dosage: 30 MG, UNK
     Dates: start: 20090901, end: 20090101
  2. PAXIL [Concomitant]
     Indication: ANXIETY
     Dosage: 5 MG, UNK
  3. ASPIRIN [Concomitant]
  4. VASOTEC [Concomitant]
  5. FISH OIL [Concomitant]

REACTIONS (1)
  - AMNESIA [None]
